FAERS Safety Report 8177108-0 (Version None)
Quarter: 2012Q1

REPORT INFORMATION
  Report Type: 
  Country: None (occurrence: None)
  Receive Date: 20120301
  Receipt Date: 20120227
  Transmission Date: 20120608
  Serious: Yes (Life-Threatening, Disabling)
  Sender: FDA-Public Use
  Company Number: US-GLAXOSMITHKLINE-A0967659A

PATIENT
  Sex: Female

DRUGS (2)
  1. VENTOLIN [Suspect]
     Indication: ASTHMA
     Dosage: 2PUFF FOUR TIMES PER DAY
     Route: 055
     Dates: start: 20100507
  2. ALBUTEROL [Concomitant]

REACTIONS (2)
  - DYSPNOEA [None]
  - PRODUCT QUALITY ISSUE [None]
